FAERS Safety Report 23563858 (Version 3)
Quarter: 2024Q1

REPORT INFORMATION
  Report Type: Spontaneous
  Country: DE (occurrence: DE)
  Receive Date: 20240226
  Receipt Date: 20240326
  Transmission Date: 20240410
  Serious: Yes (Hospitalization)
  Sender: FDA-Public Use
  Company Number: DE-BRISTOL-MYERS SQUIBB COMPANY-2024-029071

PATIENT
  Sex: Male

DRUGS (3)
  1. ELIQUIS [Suspect]
     Active Substance: APIXABAN
     Indication: Atrial fibrillation
     Dates: start: 20231230, end: 20240221
  2. DOXEPIN [Concomitant]
     Active Substance: DOXEPIN
     Indication: Insomnia
     Dosage: AT NIGHT
     Route: 048
     Dates: start: 2012
  3. CARBAMAZEPINE [Concomitant]
     Active Substance: CARBAMAZEPINE
     Indication: Tinnitus
     Dosage: AT NIGHT
     Route: 048
     Dates: start: 2022

REACTIONS (3)
  - Musculoskeletal stiffness [Unknown]
  - Illness [Unknown]
  - Constipation [Unknown]

NARRATIVE: CASE EVENT DATE: 20240101
